FAERS Safety Report 15772523 (Version 1)
Quarter: 2018Q4

REPORT INFORMATION
  Report Type: Spontaneous
  Country: US (occurrence: US)
  Receive Date: 20181228
  Receipt Date: 20181228
  Transmission Date: 20190205
  Serious: No
  Sender: FDA-Public Use
  Company Number: US-SA-2018SA394796

PATIENT
  Age: 43 Year
  Sex: Female
  Weight: 82.54 kg

DRUGS (14)
  1. FABRAZYME [Suspect]
     Active Substance: AGALSIDASE BETA
     Indication: FABRY^S DISEASE
     Dosage: 75 MG, QOW
     Route: 041
     Dates: start: 20151105
  2. GABAPENTIN. [Concomitant]
     Active Substance: GABAPENTIN
     Dosage: 2700 MG, PRN
     Route: 048
     Dates: start: 20080601
  3. EPINEPHRINE. [Concomitant]
     Active Substance: EPINEPHRINE
     Indication: ANAPHYLACTIC REACTION
     Dosage: 0.3 MG; AS DIRECTED
     Route: 030
     Dates: start: 20180905
  4. DEXAMETHASONE. [Concomitant]
     Active Substance: DEXAMETHASONE
     Dosage: 10 MG; AS DIRECTED
     Route: 042
     Dates: start: 20180905
  5. DIPHENHYDRAMINE. [Concomitant]
     Active Substance: DIPHENHYDRAMINE
     Indication: ANAPHYLACTIC REACTION
     Dosage: 25 MG, AS DIRECTED
     Route: 042
     Dates: start: 20180905
  6. NORMAL SALINE [Concomitant]
     Active Substance: SODIUM CHLORIDE
     Dosage: 0.9 %; AS DIRECTED
     Route: 042
     Dates: start: 20180905
  7. MONTELUKAST SODIUM. [Concomitant]
     Active Substance: MONTELUKAST SODIUM
     Indication: PREMEDICATION
     Dosage: 10 MG; UNK
     Route: 048
     Dates: start: 20180905
  8. SOLU-CORTEF [Concomitant]
     Active Substance: HYDROCORTISONE SODIUM SUCCINATE
     Dosage: 100 MG; AS DIRECTED
     Route: 042
     Dates: start: 20180905
  9. IRON [Concomitant]
     Active Substance: IRON
     Dosage: 325 MG; 1-2 TIMES A DAY
     Route: 048
     Dates: start: 20181219
  10. LORATADINE. [Concomitant]
     Active Substance: LORATADINE
     Indication: PREMEDICATION
     Dosage: 10 MG; UNK
     Route: 048
     Dates: start: 20180905
  11. RANITIDINE. [Concomitant]
     Active Substance: RANITIDINE
     Indication: PREMEDICATION
     Dosage: 150 MG; UNK
     Route: 048
     Dates: start: 20180905
  12. ACETAMINOPHEN. [Concomitant]
     Active Substance: ACETAMINOPHEN
     Dosage: 1000 MG; AS DIRECTED
     Route: 048
     Dates: start: 20180905
  13. SODIUM CHLORIDE. [Concomitant]
     Active Substance: SODIUM CHLORIDE
     Dosage: 0.9 %; AS DIRECTED
     Route: 042
     Dates: start: 20180905
  14. STERILE WATER [Concomitant]
     Active Substance: WATER
     Dosage: 1 DF; AS DIRECTED
     Route: 042
     Dates: start: 20180905

REACTIONS (2)
  - Carpal tunnel syndrome [Unknown]
  - Pain [Unknown]
